FAERS Safety Report 12480840 (Version 1)
Quarter: 2016Q2

REPORT INFORMATION
  Report Type: Report from Study
  Country: US (occurrence: US)
  Receive Date: 20160620
  Receipt Date: 20160620
  Transmission Date: 20160815
  Serious: Yes (Hospitalization)
  Sender: FDA-Public Use
  Company Number: US-JNJFOC-20160512424

PATIENT
  Sex: Female

DRUGS (1)
  1. IMBRUVICA [Suspect]
     Active Substance: IBRUTINIB
     Indication: CHRONIC LYMPHOCYTIC LEUKAEMIA
     Route: 048
     Dates: start: 20151103, end: 2016

REACTIONS (5)
  - Blood count abnormal [Unknown]
  - Sepsis [Unknown]
  - Pneumonia [Unknown]
  - Oedema [Recovered/Resolved]
  - Pulmonary oedema [Not Recovered/Not Resolved]
